FAERS Safety Report 8874099 (Version 1)
Quarter: 2012Q4

REPORT INFORMATION
  Report Type: 
  Country: BR (occurrence: BR)
  Receive Date: 20121031
  Receipt Date: 20121031
  Transmission Date: 20130627
  Serious: Yes (Other)
  Sender: FDA-Public Use
  Company Number: BR-AMGEN-BRASP2012023393

PATIENT
  Age: 64 Year
  Sex: Female
  Weight: 82 kg

DRUGS (3)
  1. ENBREL [Suspect]
     Indication: RHEUMATOID ARTHRITIS
     Dosage: 50 mg, weekly
     Route: 058
     Dates: start: 201201, end: 201206
  2. MELOXICAM [Concomitant]
     Dosage: 3.5 mg, 1x/day
  3. ABLOK PLUS [Concomitant]
     Indication: BLOOD PRESSURE
     Dosage: 12.5 mg (25mg at half tablet), 1x/day

REACTIONS (6)
  - Urinary tract infection [Unknown]
  - Pain [Not Recovered/Not Resolved]
  - Rheumatoid factor quantitative increased [Unknown]
  - Injection site reaction [Unknown]
  - Injection site warmth [Unknown]
  - Pharyngitis [Unknown]
